FAERS Safety Report 8133724 (Version 9)
Quarter: 2013Q2

REPORT INFORMATION
  Report Type: Spontaneous
  Country: US (occurrence: US)
  Receive Date: 20110913
  Receipt Date: 20130522
  Transmission Date: 20140414
  Serious: Yes (Other)
  Sender: FDA-Public Use
  Company Number: US-PFIZER INC-2011210004

PATIENT
  Age: 82 Year
  Sex: Female

DRUGS (3)
  1. XALATAN [Suspect]
     Dosage: UNK
  2. LATANOPROST [Suspect]
     Indication: INTRAOCULAR PRESSURE INCREASED
     Dosage: UNK
     Route: 065
     Dates: start: 201104, end: 201104
  3. PANTOPRAZOLE [Suspect]
     Indication: HIATUS HERNIA
     Dosage: 40 MG
     Route: 065

REACTIONS (5)
  - Hypoacusis [Unknown]
  - Upper respiratory tract infection [Unknown]
  - Ear infection [Unknown]
  - Dyspnoea [Unknown]
  - Adverse reaction [Unknown]
